FAERS Safety Report 5750287-8 (Version None)
Quarter: 2008Q2

REPORT INFORMATION
  Report Type: 
  Country: None (occurrence: None)
  Receive Date: 20080522
  Receipt Date: 20080522
  Transmission Date: 20081010
  Serious: Yes (Life-Threatening, Other)
  Sender: FDA-Public Use
  Company Number: None

PATIENT
  Sex: Female
  Weight: 58.9676 kg

DRUGS (1)
  1. DIGITEK 0.25 MG BERTEK [Suspect]
     Dosage: .25MG 1 TAB DAILY
     Dates: start: 20050101, end: 20080425

REACTIONS (7)
  - CHEST PAIN [None]
  - CONFUSIONAL STATE [None]
  - DIZZINESS [None]
  - DYSPNOEA [None]
  - GAIT DISTURBANCE [None]
  - HEART RATE IRREGULAR [None]
  - LETHARGY [None]
